FAERS Safety Report 13884235 (Version 1)
Quarter: 2017Q3

REPORT INFORMATION
  Report Type: Spontaneous
  Country: US (occurrence: US)
  Receive Date: 20170821
  Receipt Date: 20170821
  Transmission Date: 20171127
  Serious: No
  Sender: FDA-Public Use
  Company Number: US-TEVA-698321USA

PATIENT
  Sex: Female

DRUGS (1)
  1. HYDROCODONE W/HOMATROPINE [Suspect]
     Active Substance: HOMATROPINE METHYLBROMIDE\HYDROCODONE BITARTRATE
     Dosage: 5/1.5MG/5ML
     Dates: start: 20160825

REACTIONS (1)
  - Abdominal discomfort [Unknown]
